FAERS Safety Report 9208287 (Version 1)
Quarter: 2013Q2

REPORT INFORMATION
  Report Type: Spontaneous
  Country: JP (occurrence: JP)
  Receive Date: 20130403
  Receipt Date: 20130403
  Transmission Date: 20140414
  Serious: Yes (Hospitalization)
  Sender: FDA-Public Use
  Company Number: JP-B.I. PHARMACEUTICALS,INC./RIDGEFIELD-2013-BI-08515NB

PATIENT
  Sex: 0

DRUGS (2)
  1. MIRAPEX LA [Suspect]
     Indication: PARKINSON^S DISEASE
     Dosage: 0.375 MG
     Route: 048
  2. UNKNOWNDRUG [Concomitant]
     Indication: PARKINSON^S DISEASE
     Dosage: UNK
     Route: 065

REACTIONS (1)
  - Hospitalisation [Unknown]
